FAERS Safety Report 6018361-9 (Version None)
Quarter: 2008Q4

REPORT INFORMATION
  Report Type: 
  Country: None (occurrence: None)
  Receive Date: 20081223
  Receipt Date: 20081211
  Transmission Date: 20090506
  Serious: Yes (Other)
  Sender: FDA-Public Use
  Company Number: US-PFIZER INC-2008151910

PATIENT
  Sex: Male

DRUGS (2)
  1. VIAGRA [Suspect]
     Indication: ERECTILE DYSFUNCTION
     Dosage: 50 MG, UNK
     Dates: start: 19980101, end: 20010101
  2. SPIRONOLACTONE [Concomitant]
     Dosage: UNK
     Dates: start: 20001001

REACTIONS (3)
  - BLINDNESS [None]
  - GLAUCOMA [None]
  - RETINAL VEIN OCCLUSION [None]
